FAERS Safety Report 14783777 (Version 1)
Quarter: 2018Q2

REPORT INFORMATION
  Report Type: Spontaneous
  Country: US (occurrence: US)
  Receive Date: 20180420
  Receipt Date: 20180420
  Transmission Date: 20180711
  Serious: Yes (Other)
  Sender: FDA-Public Use
  Company Number: US-JNJFOC-20180414928

PATIENT
  Age: 71 Year
  Sex: Male
  Weight: 87.9 kg

DRUGS (11)
  1. ZESTRIL [Concomitant]
     Active Substance: LISINOPRIL
     Route: 048
  2. METOPROLOL SUCCINATE. [Concomitant]
     Active Substance: METOPROLOL SUCCINATE
     Route: 048
  3. COLCRYS [Concomitant]
     Active Substance: COLCHICINE
     Dosage: ONE-HALF TABLET TWICE DAILY
     Route: 048
  4. ELAVIL [Concomitant]
     Active Substance: AMITRIPTYLINE HYDROCHLORIDE
     Route: 048
  5. TYLENOL [Concomitant]
     Active Substance: ACETAMINOPHEN
     Route: 048
  6. ZOCOR [Concomitant]
     Active Substance: SIMVASTATIN
     Indication: BLOOD CHOLESTEROL INCREASED
     Route: 048
  7. KLONOPIN [Concomitant]
     Active Substance: CLONAZEPAM
     Route: 048
  8. XARELTO [Suspect]
     Active Substance: RIVAROXABAN
     Indication: PRODUCT USED FOR UNKNOWN INDICATION
     Route: 048
  9. ASPIRIN. [Concomitant]
     Active Substance: ASPIRIN
     Route: 048
  10. LASIX [Concomitant]
     Active Substance: FUROSEMIDE
     Dosage: ONE-HALF TABLET DAILY
     Route: 048
  11. CORDARONE [Concomitant]
     Active Substance: AMIODARONE HYDROCHLORIDE
     Route: 048

REACTIONS (11)
  - Type IIa hyperlipidaemia [Unknown]
  - Arteriosclerosis [Recovering/Resolving]
  - Myocardial ischaemia [Recovering/Resolving]
  - Aortic valve incompetence [Recovering/Resolving]
  - Left ventricular hypertrophy [Recovering/Resolving]
  - Peripheral arterial occlusive disease [Recovering/Resolving]
  - Bundle branch block right [Recovering/Resolving]
  - Sleep disorder [Unknown]
  - Left ventricular failure [Recovering/Resolving]
  - Atrial flutter [Recovered/Resolved]
  - Intermittent claudication [Recovered/Resolved]

NARRATIVE: CASE EVENT DATE: 20171204
